FAERS Safety Report 21859966 (Version 5)
Quarter: 2023Q2

REPORT INFORMATION
  Report Type: Spontaneous
  Country: US (occurrence: US)
  Receive Date: 20230113
  Receipt Date: 20230405
  Transmission Date: 20230721
  Serious: Yes (Death, Hospitalization, Other)
  Sender: FDA-Public Use
  Company Number: US-BRISTOL-MYERS SQUIBB COMPANY-2023-005078

PATIENT
  Age: 88 Year
  Sex: Male
  Weight: 76 kg

DRUGS (27)
  1. ELIQUIS [Suspect]
     Active Substance: APIXABAN
     Indication: Cerebrovascular accident prophylaxis
     Dosage: 2.5 MG, 2X/DAY
     Dates: start: 202207, end: 20221228
  2. ELIQUIS [Suspect]
     Active Substance: APIXABAN
     Dosage: 2.5 MG, 1X/DAY
     Dates: end: 20221229
  3. ELIQUIS [Suspect]
     Active Substance: APIXABAN
     Dosage: 2.5 MG, 2X/DAY
     Dates: end: 20230108
  4. ELIQUIS [Suspect]
     Active Substance: APIXABAN
     Dosage: UNK, 1X/DAY
     Dates: start: 20230202, end: 20230210
  5. ELIQUIS [Suspect]
     Active Substance: APIXABAN
     Dosage: UNK, 2X/DAY
     Dates: start: 20220901
  6. ELIQUIS [Suspect]
     Active Substance: APIXABAN
     Dosage: UNK
     Dates: start: 20220823
  7. VYNDAMAX [Suspect]
     Active Substance: TAFAMIDIS
     Indication: Amyloidosis
     Dosage: TAKES A 61 CAPSULE ONCE A DAY IN MORNING. DOES NOTKNOW DOSAGE UNITS OF 61.
     Dates: start: 2022, end: 20230210
  8. TORSEMIDE [Concomitant]
     Active Substance: TORSEMIDE
     Indication: Diuretic therapy
     Dosage: 20 MG
     Dates: start: 20220722, end: 20230210
  9. OMEPRAZOLE [Concomitant]
     Active Substance: OMEPRAZOLE
     Dosage: 40 MG, 1X/DAY
     Dates: start: 201505, end: 20230210
  10. PRAVASTATIN [Concomitant]
     Active Substance: PRAVASTATIN
     Dosage: 40 MG
     Dates: start: 20220822, end: 20230210
  11. CEPHALEXIN [Concomitant]
     Active Substance: CEPHALEXIN
     Indication: Infection prophylaxis
     Dosage: UNK
     Dates: start: 20230104, end: 20230111
  12. PEPCID [Concomitant]
     Active Substance: FAMOTIDINE
     Dosage: 40 MG
     Dates: start: 201201
  13. PEPCID [Concomitant]
     Active Substance: FAMOTIDINE
     Dosage: UNK
     Dates: start: 2017, end: 20230210
  14. STOOL SOFTENER (DOCUSATE) [Concomitant]
     Active Substance: DOCUSATE
     Dosage: UNK
  15. AMIODARONE [Concomitant]
     Active Substance: AMIODARONE
     Dosage: 200 MG
     Dates: start: 20220722, end: 20221012
  16. SIMVASTATIN [Concomitant]
     Active Substance: SIMVASTATIN
     Dosage: UNK
     Dates: start: 2015, end: 20220822
  17. FARXIGA [Concomitant]
     Active Substance: DAPAGLIFLOZIN PROPANEDIOL
     Dosage: 10 MG
     Dates: start: 201509, end: 20221205
  18. FARXIGA [Concomitant]
     Active Substance: DAPAGLIFLOZIN PROPANEDIOL
     Dosage: UNK
     Dates: start: 20220915, end: 20221206
  19. POTASSIUM [Concomitant]
     Active Substance: POTASSIUM
     Dosage: 10 MEQ
     Dates: start: 20220914, end: 20230210
  20. METOPROLOL [Concomitant]
     Active Substance: METOPROLOL
     Indication: Blood pressure decreased
     Dosage: 25 MG, AS NEEDED
     Dates: start: 20220722, end: 20230210
  21. DOCUSATE SODIUM [Concomitant]
     Active Substance: DOCUSATE SODIUM
     Dosage: 100 MG, AS NEEDED
     Dates: start: 20220722, end: 20230210
  22. DULCOLAX (BISACODYL) [Concomitant]
     Active Substance: BISACODYL
     Dosage: 5 MG, AS NEEDED
     Dates: start: 20220822, end: 20230210
  23. FAMOTIDINE [Concomitant]
     Active Substance: FAMOTIDINE
     Dosage: UNK
     Dates: start: 2017, end: 20230210
  24. FAMOTIDINE [Concomitant]
     Active Substance: FAMOTIDINE
     Dosage: 40 MG
     Dates: start: 201201, end: 20230210
  25. VITAMIN D3 [Concomitant]
     Active Substance: CHOLECALCIFEROL
     Dosage: UNK
     Dates: start: 20220722, end: 20230210
  26. MINERALS\VITAMINS [Concomitant]
     Active Substance: MINERALS\VITAMINS
     Dosage: UNK
     Dates: start: 2020, end: 20230210
  27. VITAMIN B-COMPLEX [Concomitant]
     Active Substance: DEXPANTHENOL\NIACINAMIDE\PYRIDOXINE HYDROCHLORIDE\RIBOFLAVIN 5^-PHOSPHATE SODIUM\THIAMINE HYDROCHLOR
     Dosage: UNK
     Dates: start: 2020, end: 20230210

REACTIONS (8)
  - Death [Fatal]
  - Epistaxis [Recovered/Resolved]
  - Urinary bladder haemorrhage [Unknown]
  - Nasal valve collapse [Recovering/Resolving]
  - Blood urine present [Recovered/Resolved]
  - Anaemia [Unknown]
  - Intentional product use issue [Unknown]
  - Off label use [Unknown]

NARRATIVE: CASE EVENT DATE: 20220801
